FAERS Safety Report 11611172 (Version 1)
Quarter: 2015Q4

REPORT INFORMATION
  Report Type: Spontaneous
  Country: US (occurrence: None)
  Receive Date: 20151007
  Receipt Date: 20151007
  Transmission Date: 20160304
  Serious: No
  Sender: FDA-Public Use
  Company Number: None

PATIENT
  Age: 59 Year
  Sex: Female

DRUGS (2)
  1. SUTENT [Suspect]
     Active Substance: SUNITINIB MALATE
     Indication: PRODUCT USED FOR UNKNOWN INDICATION
     Dosage: 25 DAILY ORAL
     Route: 048
     Dates: start: 20150804, end: 20151005
  2. SUTENT [Suspect]
     Active Substance: SUNITINIB MALATE
     Indication: PRODUCT USED FOR UNKNOWN INDICATION
     Dosage: 12.5 DAILY ORAL
     Route: 048
     Dates: start: 20150804, end: 20151005

REACTIONS (3)
  - Skin exfoliation [None]
  - Palmar-plantar erythrodysaesthesia syndrome [None]
  - Sunburn [None]

NARRATIVE: CASE EVENT DATE: 20151005
